FAERS Safety Report 5225653-X (Version None)
Quarter: 2007Q1

REPORT INFORMATION
  Report Type: 
  Country: None (occurrence: None)
  Receive Date: 20061201
  Receipt Date: 20061101
  Transmission Date: 20070707
  Serious: No
  Sender: FDA-Public Use
  Company Number: US200611000379

PATIENT
  Age: 55 Year
  Sex: Female

DRUGS (5)
  1. CYMBALTA [Suspect]
     Indication: DEPRESSION
     Dosage: 60 MG
     Dates: start: 20060601, end: 20061001
  2. EFFEXOR [Concomitant]
  3. SERZONE [Concomitant]
  4. CONCERTA [Concomitant]
  5. CLONAZEPAM [Concomitant]

REACTIONS (8)
  - DEPRESSION [None]
  - DIARRHOEA [None]
  - FEELING ABNORMAL [None]
  - INFLUENZA LIKE ILLNESS [None]
  - MYALGIA [None]
  - PAIN [None]
  - RASH [None]
  - STOMACH DISCOMFORT [None]
